FAERS Safety Report 10235302 (Version 1)
Quarter: 2014Q1

REPORT INFORMATION
  Report Type: Spontaneous
  Country: US (occurrence: None)
  Receive Date: 20140306
  Receipt Date: 20140306
  Transmission Date: 20141002
  Serious: Yes (Hospitalization, Other)
  Sender: FDA-Public Use
  Company Number: 163-21880-13054148

PATIENT
  Age: 83 Year
  Sex: Male
  Weight: 62.6 kg

DRUGS (9)
  1. REVLIMID(LENALIDOMIDE)(5 MILLIGRAM, CAPSULES) [Suspect]
     Indication: MYELODYSPLASTIC SYNDROME
     Route: 048
     Dates: start: 201303
  2. LASIX(FUROSEMIDE)(TABLETS) [Concomitant]
  3. PREDNISONE (PREDNISONE)(TABLETS) [Concomitant]
  4. SYNTHROID(LEVOTHYROXINE SODIUM)(TABLETS) [Concomitant]
  5. ASPIRIN(ACETYLSALICYLIC ACID)(CHEWABLE TABLET) [Concomitant]
  6. PRILOSEC(OMEPRAZOLE)(CAPSULES) [Concomitant]
  7. FISH OIL(FISH OIL)(CAPSULES) [Concomitant]
  8. POLYCAL POWDER(MALTODEXTRIN)(POWDER) [Concomitant]
  9. POTASSIUM BICARBONATE(POTASSIUM BICARBONATE) [Concomitant]

REACTIONS (3)
  - Full blood count decreased [None]
  - Pain in extremity [None]
  - Local swelling [None]
